FAERS Safety Report 6001667-7 (Version None)
Quarter: 2008Q4

REPORT INFORMATION
  Report Type: 
  Country: None (occurrence: None)
  Receive Date: 20081215
  Receipt Date: 20081209
  Transmission Date: 20090506
  Serious: Yes (Hospitalization, Other)
  Sender: FDA-Public Use
  Company Number: JP-ROXANE LABORATORIES, INC.-2008-RO-00391RO

PATIENT
  Age: 36 Year
  Sex: Female

DRUGS (11)
  1. TAMOXIFEN CITRATE [Suspect]
     Indication: METASTASES TO BONE
     Dates: start: 20040101
  2. TAMOXIFEN CITRATE [Suspect]
     Indication: BREAST CANCER RECURRENT
  3. GONADOTROPIN-RELEASING HORMONE ANALOG [Suspect]
     Indication: METASTASES TO BONE
     Dates: start: 20040101
  4. GONADOTROPIN-RELEASING HORMONE ANALOG [Suspect]
     Indication: BREAST CANCER RECURRENT
  5. MEDROXYPROGESTERONE [Suspect]
     Indication: METASTASES TO BONE
     Dates: start: 20050401
  6. ALL-TRANS RETINOIC ACID [Suspect]
     Indication: ACUTE PROMYELOCYTIC LEUKAEMIA
  7. MITOXANTRONE [Suspect]
     Indication: ACUTE PROMYELOCYTIC LEUKAEMIA
  8. CYTARABINE [Suspect]
     Indication: ACUTE PROMYELOCYTIC LEUKAEMIA
  9. DAUNORUBICIN [Suspect]
     Indication: ACUTE PROMYELOCYTIC LEUKAEMIA
  10. PACLITAXEL [Suspect]
     Indication: METASTASES TO BONE MARROW
     Dates: start: 20060701
  11. BISPHOSPHONATE [Suspect]
     Indication: BREAST CANCER

REACTIONS (5)
  - ACUTE PROMYELOCYTIC LEUKAEMIA [None]
  - LEUKAEMIA RECURRENT [None]
  - METASTASES TO BONE [None]
  - METASTASES TO BONE MARROW [None]
  - OEDEMA PERIPHERAL [None]
